FAERS Safety Report 6992551-0 (Version None)
Quarter: 2010Q3

REPORT INFORMATION
  Report Type: 
  Country: None (occurrence: None)
  Receive Date: 20100917
  Receipt Date: 20100909
  Transmission Date: 20110219
  Serious: Yes (Hospitalization, Other)
  Sender: FDA-Public Use
  Company Number: US-ROCHE-720312

PATIENT
  Sex: Female
  Weight: 109.8 kg

DRUGS (4)
  1. PEGASYS [Suspect]
     Indication: HEPATITIS C
     Dosage: FREQUENCY REPORTED AS: X1.
     Route: 058
     Dates: start: 20100804, end: 20100804
  2. ACIPHEX [Concomitant]
  3. SYNTHROID [Concomitant]
  4. ALBUTEROL [Concomitant]
     Dosage: DRUG REPORTED: ALBUTERAL

REACTIONS (9)
  - ASTHENIA [None]
  - DIARRHOEA [None]
  - DYSPNOEA [None]
  - FAECAL INCONTINENCE [None]
  - HYPOACUSIS [None]
  - MOVEMENT DISORDER [None]
  - SPEECH DISORDER [None]
  - TUNNEL VISION [None]
  - VERTIGO [None]
